FAERS Safety Report 15077567 (Version 1)
Quarter: 2018Q2

REPORT INFORMATION
  Report Type: Spontaneous
  Country: JP (occurrence: JP)
  Receive Date: 20180627
  Receipt Date: 20180627
  Transmission Date: 20180711
  Serious: Yes (Death)
  Sender: FDA-Public Use
  Company Number: JP-NOVOPROD-607054

PATIENT
  Age: 70 Year
  Sex: Male
  Weight: 68 kg

DRUGS (1)
  1. NOVOSEVEN [Suspect]
     Active Substance: COAGULATION FACTOR VIIA RECOMBINANT HUMAN
     Indication: ACQUIRED HAEMOPHILIA
     Dosage: 15 MG, QD
     Route: 042
     Dates: start: 20180610, end: 20180610

REACTIONS (2)
  - Thalamus haemorrhage [Fatal]
  - Cerebral ventricular rupture [Fatal]

NARRATIVE: CASE EVENT DATE: 20180615
